FAERS Safety Report 5403902-2 (Version None)
Quarter: 2007Q3

REPORT INFORMATION
  Report Type: 
  Country: None (occurrence: None)
  Receive Date: 20070713
  Receipt Date: 20061011
  Transmission Date: 20080115
  Serious: Yes (Life-Threatening, Hospitalization)
  Sender: FDA-Public Use
  Company Number: REM_00287_2006

PATIENT
  Age: 36 Year
  Sex: Female

DRUGS (7)
  1. REMODULIN [Suspect]
     Indication: PULMONARY HYPERTENSION
     Dosage: 104 NG/KG/MIN CONTINUOUS IV
     Route: 042
  2. CARDIZEM CD [Concomitant]
  3. FUROSEMIDE [Concomitant]
  4. WARFARIN SODIUM [Concomitant]
  5. POTASSIUM CHLORIDE [Concomitant]
  6. DIGOXIN [Concomitant]
  7. SOTALOL HYDROCHLORIDE [Concomitant]

REACTIONS (9)
  - BACTERIAL SEPSIS [None]
  - DELUSION [None]
  - DIARRHOEA [None]
  - DYSPNOEA [None]
  - HAEMATOCRIT DECREASED [None]
  - INTERNATIONAL NORMALISED RATIO INCREASED [None]
  - OXYGEN SATURATION DECREASED [None]
  - PYREXIA [None]
  - SEPTIC EMBOLUS [None]
